FAERS Safety Report 9387955 (Version 4)
Quarter: 2014Q2

REPORT INFORMATION
  Report Type: Report from Study
  Country: HU (occurrence: HU)
  Receive Date: 20130708
  Receipt Date: 20140423
  Transmission Date: 20141212
  Serious: Yes (Hospitalization)
  Sender: FDA-Public Use
  Company Number: HU-SANOFI-AVENTIS-2013SA048480

PATIENT
  Age: 42 Year
  Sex: Male
  Weight: 55 kg

DRUGS (2)
  1. TERIFLUNOMIDE [Suspect]
     Indication: MULTIPLE SCLEROSIS RELAPSE
     Route: 048
     Dates: start: 20130410
  2. BETAFERON [Suspect]
     Indication: MULTIPLE SCLEROSIS
     Route: 065
     Dates: start: 1996, end: 20130409

REACTIONS (2)
  - Eosinophilic pneumonia [Recovered/Resolved]
  - Interstitial lung disease [Unknown]
